FAERS Safety Report 13368893 (Version 3)
Quarter: 2017Q2

REPORT INFORMATION
  Report Type: Spontaneous
  Country: US (occurrence: US)
  Receive Date: 20170324
  Receipt Date: 20170608
  Transmission Date: 20170830
  Serious: Yes (Death, Other)
  Sender: FDA-Public Use
  Company Number: US-PFIZER INC-2017124540

PATIENT
  Age: 69 Year
  Sex: Male
  Weight: 100 kg

DRUGS (5)
  1. SIMVASTATIN. [Concomitant]
     Active Substance: SIMVASTATIN
     Dosage: UNK
  2. VERAPAMIL [Concomitant]
     Active Substance: VERAPAMIL HYDROCHLORIDE
     Dosage: UNK
  3. ALPRAZOLAM. [Concomitant]
     Active Substance: ALPRAZOLAM
     Dosage: UNK
  4. LYRICA [Suspect]
     Active Substance: PREGABALIN
     Indication: CLUSTER HEADACHE
     Dosage: 225 MG, 2X/DAY
     Route: 048
  5. TIZANIDINE. [Concomitant]
     Active Substance: TIZANIDINE
     Dosage: 40 MG, UNK

REACTIONS (6)
  - Malaise [Not Recovered/Not Resolved]
  - Product use in unapproved indication [Fatal]
  - Renal disorder [Unknown]
  - Cardiac arrest [Fatal]
  - Prostatic specific antigen increased [Not Recovered/Not Resolved]
  - Renal failure [Unknown]

NARRATIVE: CASE EVENT DATE: 2013
